FAERS Safety Report 7687313-5 (Version None)
Quarter: 2011Q3

REPORT INFORMATION
  Report Type: 
  Country: None (occurrence: None)
  Receive Date: 20110816
  Receipt Date: 20110801
  Transmission Date: 20111222
  Serious: Yes (Hospitalization)
  Sender: FDA-Public Use
  Company Number: BR-BAYER-2011-068030

PATIENT
  Age: 58 Year
  Sex: Female
  Weight: 60.1 kg

DRUGS (7)
  1. LOSARTAN POTASSIUM [Concomitant]
     Dosage: UNK
     Dates: start: 20091224
  2. UNSPECIFIED PFIZER STUDY DRUG [Suspect]
     Dosage: 10 MG, BID
     Route: 048
     Dates: start: 20101121, end: 20110214
  3. UNSPECIFIED PFIZER STUDY DRUG [Suspect]
     Dosage: 10 MG, BID
     Route: 048
     Dates: start: 20100428, end: 20101030
  4. ACETYLSALICYLIC ACID SRT [Suspect]
     Indication: CARDIOVASCULAR EVENT PROPHYLAXIS
     Dosage: 100 MG, QD
     Route: 048
     Dates: start: 20100728
  5. UNSPECIFIED PFIZER STUDY DRUG [Suspect]
     Indication: RHEUMATOID ARTHRITIS
     Dosage: 5 MG, BID
     Route: 048
     Dates: start: 20080806, end: 20100427
  6. OMEPRAZOLE [Concomitant]
     Dosage: UNK
     Dates: start: 20080311
  7. DICLOFENAC SODIUM [Suspect]
     Indication: RHEUMATOID ARTHRITIS
     Dosage: 50 MG, QD
     Route: 048
     Dates: start: 20080123

REACTIONS (5)
  - NAUSEA [None]
  - ABDOMINAL PAIN [None]
  - DIVERTICULITIS [None]
  - DIVERTICULAR PERFORATION [None]
  - DIARRHOEA [None]
